FAERS Safety Report 4767078-7 (Version None)
Quarter: 2005Q3

REPORT INFORMATION
  Report Type: 
  Country: None (occurrence: None)
  Receive Date: 20050908
  Receipt Date: 20050829
  Transmission Date: 20060218
  Serious: Yes (Death, Other)
  Sender: FDA-Public Use
  Company Number: 2005121254

PATIENT
  Age: 73 Year
  Sex: Female
  Weight: 53 kg

DRUGS (1)
  1. SORTIS (ATORVASTATIN) [Suspect]
     Indication: HYPERLIPIDAEMIA
     Dosage: 20 MG (20 MG, 1 IN 1 D), ORAL
     Route: 048
     Dates: start: 20050201

REACTIONS (8)
  - DIFFUSE ALVEOLAR DAMAGE [None]
  - DYSPNOEA [None]
  - MULTI-ORGAN FAILURE [None]
  - MUSCLE NECROSIS [None]
  - PAIN [None]
  - RENAL FAILURE ACUTE [None]
  - RESPIRATORY FAILURE [None]
  - RHABDOMYOLYSIS [None]
